FAERS Safety Report 6998616-1 (Version None)
Quarter: 2010Q3

REPORT INFORMATION
  Report Type: 
  Country: None (occurrence: None)
  Receive Date: 20100920
  Receipt Date: 20100302
  Transmission Date: 20110219
  Serious: Yes (Other)
  Sender: FDA-Public Use
  Company Number: US-ASTRAZENECA-2009UW20621

PATIENT
  Sex: Female

DRUGS (4)
  1. SEROQUEL [Suspect]
     Dosage: 200 MG TO 300 MG
     Route: 048
     Dates: start: 20050128
  2. SINGULAIR [Concomitant]
     Dates: start: 20050125
  3. TRAZODONE HCL [Concomitant]
     Dates: start: 20050128
  4. FLUOXETINE HCL [Concomitant]
     Dosage: 20 MG TO 60 MG DAILY
     Dates: start: 20050128

REACTIONS (3)
  - KETOACIDOSIS [None]
  - PANCREATITIS [None]
  - TYPE 2 DIABETES MELLITUS [None]
